FAERS Safety Report 9121525 (Version 2)
Quarter: 2013Q1

REPORT INFORMATION
  Report Type: Spontaneous
  Country: NO (occurrence: NO)
  Receive Date: 20130102
  Receipt Date: 20130117
  Transmission Date: 20140127
  Serious: Yes (Disabling)
  Sender: FDA-Public Use
  Company Number: NO-BRACCO-000142

PATIENT
  Sex: Female
  Weight: 71 kg

DRUGS (33)
  1. ADVAGRAF [Concomitant]
     Dosage: 1 DF, UNK
  2. ALENDRONATE SODIUM [Concomitant]
     Dosage: 1 DF, OW
  3. MULTIHANCE [Concomitant]
     Indication: ANGIOGRAM
     Dosage: UNK
     Route: 042
     Dates: start: 20070823, end: 20070823
  4. MULTIHANCE [Concomitant]
     Indication: ANGIOGRAM
     Dosage: UNK
     Dates: start: 2008, end: 2008
  5. NICOTINAMIDE [Concomitant]
  6. ALBYL-E [Concomitant]
     Dosage: 1 DF, UNK
  7. BURINEX [Concomitant]
     Dosage: 2 DF, UNK
  8. COZAAR [Concomitant]
     Dosage: 1 DF, UNK
     Dates: end: 201106
  9. DETRUSITOL [Concomitant]
     Dosage: 1 DF, UNK
  10. HUMALOG [Concomitant]
     Dosage: 2 - 6 IU
  11. LANTUS [Concomitant]
     Dosage: 6 - 6 IU
  12. MAGNEVIST [Suspect]
     Indication: NUCLEAR MAGNETIC RESONANCE IMAGING
     Dosage: UNK UNK, ONCE
  13. MAGNEVIST [Suspect]
     Indication: NUCLEAR MAGNETIC RESONANCE IMAGING
     Dosage: UNK UNK, ONCE
  14. MAGNEVIST [Suspect]
     Indication: NUCLEAR MAGNETIC RESONANCE IMAGING
     Dosage: UNK UNK, ONCE
  15. MAGNEVIST [Suspect]
     Indication: NUCLEAR MAGNETIC RESONANCE IMAGING
     Dosage: UNK
     Route: 042
     Dates: start: 20000303, end: 20000303
  16. MAGNEVIST [Suspect]
     Indication: NUCLEAR MAGNETIC RESONANCE IMAGING
     Dosage: UNK UNK, ONCE
  17. MAGNEVIST [Suspect]
     Indication: NUCLEAR MAGNETIC RESONANCE IMAGING
     Dosage: UNK UNK, ONCE
  18. MAGNEVIST [Suspect]
     Indication: NUCLEAR MAGNETIC RESONANCE IMAGING
     Dosage: UNK UNK, ONCE
     Dates: start: 20060105, end: 20060105
  19. MYFORTIC [Concomitant]
     Dosage: 2 DF, UNK
  20. PARACET [Concomitant]
     Dosage: UNK UNK, PRN
  21. PREDNISOLON [Concomitant]
     Dosage: 1 DF, UNK
  22. SOMAC [Concomitant]
     Dosage: 1 DF, UNK
  23. ULTRAVIST [Concomitant]
     Indication: ANGIOGRAM
     Dosage: 50 ML, UNK
     Dates: start: 20000310, end: 20000310
  24. VALLERGAN [Concomitant]
     Dosage: UNK UNK, PRN
  25. PANTHENOL [Concomitant]
  26. RETINOL [Concomitant]
  27. ASCORBIC ACID [Concomitant]
  28. CONTRAST MEDIA [Concomitant]
     Indication: IMAGING PROCEDURE
     Dosage: UNK, ONCE
     Dates: start: 2000, end: 2000
  29. CONTRAST MEDIA [Concomitant]
     Indication: IMAGING PROCEDURE
     Dosage: UNK, ONCE
     Dates: start: 2002, end: 2002
  30. FOLIC ACID [Concomitant]
  31. THIAMINE HYDROCHLORIDE [Concomitant]
  32. RIBOFLAVIN [Concomitant]
  33. ERGOCALCIFEROL [Concomitant]

REACTIONS (12)
  - Joint stiffness [Recovered/Resolved with Sequelae]
  - Joint contracture [Recovered/Resolved with Sequelae]
  - Joint range of motion decreased [Recovered/Resolved with Sequelae]
  - Skin tightness [Recovered/Resolved with Sequelae]
  - Skin hypertrophy [Recovered/Resolved with Sequelae]
  - Nephrogenic systemic fibrosis [Recovered/Resolved with Sequelae]
  - Peau d^orange [Recovered/Resolved with Sequelae]
  - Skin disorder [Recovered/Resolved with Sequelae]
  - Skin fibrosis [Recovered/Resolved with Sequelae]
  - Skin induration [Recovered/Resolved with Sequelae]
  - Skin discolouration [Recovered/Resolved with Sequelae]
  - Scleral discolouration [Recovered/Resolved with Sequelae]
